FAERS Safety Report 10626143 (Version 1)
Quarter: 2014Q4

REPORT INFORMATION
  Report Type: Spontaneous
  Country: US (occurrence: None)
  Receive Date: 20141121
  Receipt Date: 20141121
  Transmission Date: 20150529
  Serious: No
  Sender: FDA-Public Use
  Company Number: 163-10004-14073502

PATIENT
  Age: 64 Year
  Sex: Female
  Weight: 79.38 kg

DRUGS (9)
  1. VESICARE [Concomitant]
     Active Substance: SOLIFENACIN SUCCINATE
  2. VITAMIN B3 (NICOTINAMIDE) [Concomitant]
  3. OTEZLA [Suspect]
     Active Substance: APREMILAST
     Indication: PSORIATIC ARTHROPATHY
     Route: 048
     Dates: start: 20140715
  4. VITAMIN C [Concomitant]
     Active Substance: ASCORBIC ACID
  5. LOVAZA (OMEGA-3 MARINE TRIGLYCERIDES) [Concomitant]
  6. DIOVAN [Concomitant]
     Active Substance: VALSARTAN
  7. OMEPRAZOLE. [Concomitant]
     Active Substance: OMEPRAZOLE
  8. ZETIA [Concomitant]
     Active Substance: EZETIMIBE
  9. MULTIVITAMINS [Concomitant]
     Active Substance: VITAMINS

REACTIONS (3)
  - Headache [None]
  - Malaise [None]
  - Nausea [None]

NARRATIVE: CASE EVENT DATE: 20140716
